FAERS Safety Report 4714516-1 (Version None)
Quarter: 2005Q3

REPORT INFORMATION
  Report Type: 
  Country: None (occurrence: None)
  Receive Date: 20050712
  Receipt Date: 20050627
  Transmission Date: 20060218
  Serious: Yes (Other)
  Sender: FDA-Public Use
  Company Number: 033-4

PATIENT
  Age: 71 Year
  Sex: Male

DRUGS (4)
  1. TEVETEN HCT [Suspect]
     Indication: HYPERTENSION
     Dates: start: 20040715, end: 20041004
  2. DIURETIC [Concomitant]
  3. CALCIUM ANTAGONIST [Concomitant]
  4. INSULIN [Concomitant]

REACTIONS (2)
  - BLOOD PRESSURE INCREASED [None]
  - HEART RATE DECREASED [None]
